FAERS Safety Report 8535005-2 (Version None)
Quarter: 2012Q3

REPORT INFORMATION
  Report Type: 
  Country: None (occurrence: None)
  Receive Date: 20120724
  Receipt Date: 20120718
  Transmission Date: 20120928
  Serious: Yes (Other)
  Sender: FDA-Public Use
  Company Number: US-PFIZER INC-2012103006

PATIENT
  Sex: Female
  Weight: 66 kg

DRUGS (2)
  1. ATENOLOL [Concomitant]
     Indication: HYPERTENSION
     Dosage: UNK
  2. ESTRING [Suspect]
     Indication: URINARY TRACT INFECTION
     Dosage: 2 MG, UNK
     Route: 067
     Dates: start: 20120613

REACTIONS (2)
  - OFF LABEL USE [None]
  - HEART RATE IRREGULAR [None]
